FAERS Safety Report 6109251-1 (Version None)
Quarter: 2009Q1

REPORT INFORMATION
  Report Type: 
  Country: None (occurrence: None)
  Receive Date: 20090310
  Receipt Date: 20090303
  Transmission Date: 20090719
  Serious: Yes (Life-Threatening, Hospitalization, Other)
  Sender: FDA-Public Use
  Company Number: DE-WYE-G03239909

PATIENT
  Age: 30 Year
  Sex: Female
  Weight: 59 kg

DRUGS (11)
  1. VENLAFAXINE HCL [Suspect]
     Route: 048
     Dates: start: 20080514, end: 20080515
  2. VENLAFAXINE HCL [Suspect]
     Route: 048
     Dates: start: 20080516, end: 20080521
  3. LORAZEPAM [Concomitant]
     Route: 048
     Dates: start: 20080430, end: 20080505
  4. LORAZEPAM [Concomitant]
     Route: 048
     Dates: start: 20080506, end: 20080521
  5. AKINETON [Concomitant]
     Route: 048
     Dates: start: 20080416, end: 20080521
  6. SEROQUEL [Concomitant]
     Route: 048
     Dates: start: 20080514, end: 20080515
  7. SEROQUEL [Concomitant]
     Route: 048
     Dates: start: 20080516, end: 20080519
  8. SEROQUEL [Concomitant]
     Route: 048
     Dates: start: 20080520, end: 20080521
  9. ZYPREXA [Suspect]
     Route: 048
     Dates: start: 20080429, end: 20080430
  10. ZYPREXA [Suspect]
     Route: 048
     Dates: start: 20080501, end: 20080512
  11. ZYPREXA [Suspect]
     Route: 048
     Dates: start: 20080513, end: 20080521

REACTIONS (6)
  - FRACTURE [None]
  - PARKINSONISM [None]
  - RESTLESSNESS [None]
  - SUICIDAL IDEATION [None]
  - SUICIDE ATTEMPT [None]
  - TRAUMATIC BRAIN INJURY [None]
